FAERS Safety Report 6532997-8 (Version None)
Quarter: 2010Q1

REPORT INFORMATION
  Report Type: 
  Country: None (occurrence: None)
  Receive Date: 20100111
  Receipt Date: 20100106
  Transmission Date: 20100710
  Serious: Yes (Hospitalization, Other)
  Sender: FDA-Public Use
  Company Number: PHHY2009JP59004

PATIENT
  Age: 26 Year
  Sex: Male

DRUGS (2)
  1. EXJADE [Suspect]
     Indication: IRON OVERLOAD
     Dosage: 500 MG, BID
     Route: 048
     Dates: start: 20091216, end: 20091218
  2. EXJADE [Suspect]
     Indication: APLASTIC ANAEMIA

REACTIONS (6)
  - EATING DISORDER [None]
  - HAEMATEMESIS [None]
  - OESOPHAGEAL ULCER [None]
  - OROPHARYNGEAL DISCOMFORT [None]
  - OROPHARYNGEAL PAIN [None]
  - WRONG TECHNIQUE IN DRUG USAGE PROCESS [None]
